FAERS Safety Report 22626808 (Version 1)
Quarter: 2023Q2

REPORT INFORMATION
  Report Type: Spontaneous
  Country: BR (occurrence: BR)
  Receive Date: 20230622
  Receipt Date: 20230622
  Transmission Date: 20230722
  Serious: Yes (Hospitalization, Other)
  Sender: FDA-Public Use
  Company Number: BR-AMGEN-BRASP2023099089

PATIENT
  Age: 24 Year
  Sex: Female

DRUGS (1)
  1. AVSOLA [Suspect]
     Active Substance: INFLIXIMAB-AXXQ
     Indication: Crohn^s disease
     Dosage: 6 MILLIGRAM/KG, Q8WK
     Route: 065
     Dates: end: 20211006

REACTIONS (5)
  - Pulmonary tuberculosis [Recovered/Resolved]
  - Haemorrhoids [Recovered/Resolved]
  - Intestinal tuberculosis [Recovered/Resolved]
  - Candida infection [Recovered/Resolved]
  - Laryngitis [Recovered/Resolved]

NARRATIVE: CASE EVENT DATE: 20210101
